FAERS Safety Report 7031986-7 (Version None)
Quarter: 2010Q4

REPORT INFORMATION
  Report Type: 
  Country: None (occurrence: None)
  Receive Date: 20101005
  Receipt Date: 20100922
  Transmission Date: 20110411
  Serious: Yes (Hospitalization)
  Sender: FDA-Public Use
  Company Number: TCI2010A04073

PATIENT
  Age: 68 Year
  Sex: Female

DRUGS (6)
  1. ACTOS [Suspect]
     Indication: TYPE 2 DIABETES MELLITUS
     Dosage: 15 MG (15 MG,1 D) PER ORAL
     Route: 048
     Dates: start: 20091204, end: 20100119
  2. ALPHA GLUCOSIDASE INHIBITORS [Concomitant]
  3. CALCIUM CHANNEL BLOCKERS [Concomitant]
  4. ANGIOTENSIN II ANTAGONISTS [Concomitant]
  5. HMG COA REDUCTASE INHIBITORS [Concomitant]
  6. ANTITHROMBOTIC AGENTS [Concomitant]

REACTIONS (1)
  - CEREBRAL INFARCTION [None]
